FAERS Safety Report 20421225 (Version 1)
Quarter: 2022Q1

REPORT INFORMATION
  Report Type: Spontaneous
  Country: US (occurrence: None)
  Receive Date: 20220203
  Receipt Date: 20220203
  Transmission Date: 20220423
  Serious: Yes (Death, Hospitalization)
  Sender: FDA-Public Use
  Company Number: None

PATIENT
  Age: 52 Year
  Sex: Male
  Weight: 113 kg

DRUGS (1)
  1. BARICITINIB [Suspect]
     Active Substance: BARICITINIB
     Indication: COVID-19 pneumonia
     Dosage: 4 MG EVERY DAY PO?
     Route: 048
     Dates: start: 20211225, end: 20220102

REACTIONS (5)
  - COVID-19 pneumonia [None]
  - Disease complication [None]
  - Pneumonia bacterial [None]
  - Infection [None]
  - Disease progression [None]

NARRATIVE: CASE EVENT DATE: 20220102
